FAERS Safety Report 5571790-X (Version None)
Quarter: 2007Q4

REPORT INFORMATION
  Report Type: 
  Country: None (occurrence: None)
  Receive Date: 20071221
  Receipt Date: 20071217
  Transmission Date: 20080405
  Serious: Yes (Hospitalization, Other)
  Sender: FDA-Public Use
  Company Number: B0500263A

PATIENT
  Age: 71 Year
  Sex: Female

DRUGS (6)
  1. AVANDIA [Suspect]
     Indication: DIABETES MELLITUS
     Dosage: 8MG PER DAY
     Route: 048
     Dates: start: 20021203, end: 20070901
  2. AMARYL [Concomitant]
     Dosage: 6MG PER DAY
     Route: 048
  3. PLENDIL [Concomitant]
     Dosage: 5MG PER DAY
     Route: 048
  4. SIMVASTATIN [Concomitant]
     Dosage: 40MG PER DAY
     Route: 048
  5. IMOVANE [Concomitant]
     Dosage: 7.5MG PER DAY
     Route: 048
  6. NEXIUM [Concomitant]
     Dosage: 20MG AS REQUIRED
     Route: 048

REACTIONS (3)
  - CARDIAC FAILURE [None]
  - COUGH [None]
  - PLEURAL EFFUSION [None]
